FAERS Safety Report 25209992 (Version 1)
Quarter: 2025Q2

REPORT INFORMATION
  Report Type: Spontaneous
  Country: GB (occurrence: GB)
  Receive Date: 20250417
  Receipt Date: 20250417
  Transmission Date: 20250717
  Serious: Yes (Other)
  Sender: REGENERON
  Company Number: None

PATIENT
  Age: 64 Year
  Sex: Female

DRUGS (6)
  1. PRALUENT [Suspect]
     Active Substance: ALIROCUMAB
     Indication: Adverse drug reaction
  2. EZETIMIBE [Concomitant]
     Active Substance: EZETIMIBE
  3. AMITRIPTYLINE [Concomitant]
     Active Substance: AMITRIPTYLINE
  4. RAMIPRIL [Concomitant]
     Active Substance: RAMIPRIL
  5. BISOPROLOL [Concomitant]
     Active Substance: BISOPROLOL
  6. PENTOSAN POLYSULFATE [Concomitant]
     Active Substance: PENTOSAN POLYSULFATE

REACTIONS (1)
  - Arthralgia [Recovering/Resolving]
